FAERS Safety Report 8758306 (Version 3)
Quarter: 2013Q1

REPORT INFORMATION
  Report Type: Spontaneous
  Country: US (occurrence: None)
  Receive Date: 20120814
  Receipt Date: 20120926
  Transmission Date: 20140127
  Serious: Yes (Other)
  Sender: FDA-Public Use
  Company Number: 2012P1052726

PATIENT
  Age: 25 Year
  Sex: Female

DRUGS (2)
  1. MYORISAN [Suspect]
     Dates: start: 20120710, end: 20120725
  2. BACTRIM DS [Concomitant]

REACTIONS (3)
  - Human chorionic gonadotropin abnormal [None]
  - Maternal exposure during pregnancy [None]
  - Abortion induced [None]
